FAERS Safety Report 18692395 (Version 1)
Quarter: 2021Q1

REPORT INFORMATION
  Report Type: Spontaneous
  Country: FR (occurrence: FR)
  Receive Date: 20210103
  Receipt Date: 20210103
  Transmission Date: 20210419
  Serious: Yes (Other)
  Sender: FDA-Public Use
  Company Number: FR-AIRGAS USA-2103825

PATIENT
  Age: 74 Year
  Sex: Male

DRUGS (1)
  1. MEDICAL OXYGEN PROVIDED BY AIR LIQUIDE SANTE INTERNATIONAL IN FRANCE [Suspect]
     Active Substance: OXYGEN
     Indication: PRODUCT USED FOR UNKNOWN INDICATION
     Route: 055

REACTIONS (2)
  - Oxygen saturation decreased [Recovered/Resolved]
  - Accidental underdose [Recovered/Resolved]

NARRATIVE: CASE EVENT DATE: 20201221
